FAERS Safety Report 9527860 (Version 1)
Quarter: 2013Q3

REPORT INFORMATION
  Report Type: Spontaneous
  Country: US (occurrence: US)
  Receive Date: 20130917
  Receipt Date: 20130917
  Transmission Date: 20140515
  Serious: No
  Sender: FDA-Public Use
  Company Number: US-PFIZER INC-2013264278

PATIENT
  Age: 88 Year
  Sex: Female

DRUGS (1)
  1. XALKORI [Suspect]
     Dosage: 200 MG, 2X/DAY
     Dates: start: 20120314

REACTIONS (2)
  - Malaise [Unknown]
  - Nausea [Unknown]
